FAERS Safety Report 6749900-8 (Version None)
Quarter: 2010Q2

REPORT INFORMATION
  Report Type: 
  Country: None (occurrence: None)
  Receive Date: 20100601
  Receipt Date: 20100524
  Transmission Date: 20101027
  Serious: Yes (Other)
  Sender: FDA-Public Use
  Company Number: US-BRISTOL-MYERS SQUIBB COMPANY-15119019

PATIENT
  Age: 72 Year
  Sex: Male

DRUGS (17)
  1. MEGACE [Suspect]
     Indication: APPETITE DISORDER
     Dosage: 1 DF=40MG/ML
     Route: 048
  2. CARBOPLATIN [Suspect]
     Indication: CHEMOTHERAPY
     Route: 042
     Dates: start: 20100414
  3. TAXOL [Suspect]
     Indication: CHEMOTHERAPY
     Route: 042
     Dates: start: 20100414
  4. COREG [Suspect]
     Route: 048
  5. HYDROCHLOROTHIAZIDE [Suspect]
     Route: 048
  6. VITAMIN D [Suspect]
     Indication: PROPHYLAXIS OF NAUSEA AND VOMITING
     Dosage: 1DF=50000 UNIT
     Route: 065
  7. FOSINOPRIL SODIUM [Concomitant]
     Route: 048
  8. ZOFRAN [Concomitant]
     Indication: PROPHYLAXIS OF NAUSEA AND VOMITING
     Route: 042
  9. PLAVIX [Concomitant]
     Route: 048
  10. ZANTAC [Concomitant]
     Indication: PROPHYLAXIS
     Route: 042
  11. ASPIRIN [Concomitant]
     Dosage: ASPIRIN TABLET
     Route: 048
  12. DETROL [Concomitant]
     Dosage: TOLTERODINE TARTRATE
     Route: 048
  13. DEXAMETHASONE [Concomitant]
     Indication: PROPHYLAXIS OF NAUSEA AND VOMITING
     Dosage: INJECTION
     Route: 042
  14. DIPHENHYDRAMINE HYDROCHLORIDE [Concomitant]
     Indication: PROPHYLAXIS
     Route: 042
  15. PHENERGAN [Concomitant]
     Indication: NAUSEA
     Dosage: TABS
     Route: 048
  16. SIMVASTATIN [Concomitant]
     Dosage: AT NIGHT
     Route: 048
  17. OMEPRAZOLE [Concomitant]
     Dosage: 1DF=20 UNITS NOT SPECIFIED
     Route: 048

REACTIONS (16)
  - BLOOD CHLORIDE DECREASED [None]
  - BLOOD GLUCOSE INCREASED [None]
  - BLOOD POTASSIUM DECREASED [None]
  - BLOOD UREA INCREASED [None]
  - DECREASED APPETITE [None]
  - DEHYDRATION [None]
  - DIARRHOEA [None]
  - FAILURE TO THRIVE [None]
  - HAEMOGLOBIN DECREASED [None]
  - HYPOCALCAEMIA [None]
  - HYPOMAGNESAEMIA [None]
  - HYPONATRAEMIA [None]
  - HYPOPHAGIA [None]
  - PROTHROMBIN TIME PROLONGED [None]
  - TACHYCARDIA [None]
  - WHITE BLOOD CELL COUNT DECREASED [None]
